FAERS Safety Report 5797914-7 (Version None)
Quarter: 2008Q2

REPORT INFORMATION
  Report Type: 
  Country: None (occurrence: None)
  Receive Date: 20080630
  Receipt Date: 20080619
  Transmission Date: 20081010
  Serious: Yes (Hospitalization)
  Sender: FDA-Public Use
  Company Number: JP-1166498

PATIENT

DRUGS (2)
  1. PATANOL [Suspect]
     Dosage: OPHTHALMIC
     Route: 047
  2. PITOS (FLUOROMETHOLONE) [Concomitant]

REACTIONS (2)
  - CHEST PAIN [None]
  - SHOCK [None]
